FAERS Safety Report 14404300 (Version 3)
Quarter: 2018Q4

REPORT INFORMATION
  Report Type: Spontaneous
  Country: US (occurrence: US)
  Receive Date: 20180117
  Receipt Date: 20181010
  Transmission Date: 20190204
  Serious: Yes (Hospitalization)
  Sender: FDA-Public Use
  Company Number: US-DSJP-DSU-2017-147934

PATIENT

DRUGS (1)
  1. BENICAR HCT [Suspect]
     Active Substance: HYDROCHLOROTHIAZIDE\OLMESARTAN MEDOXOMIL
     Indication: PRODUCT USED FOR UNKNOWN INDICATION
     Dosage: 40-25 MG (0.5 TABLET), QD
     Route: 048
     Dates: start: 20150101, end: 20160430

REACTIONS (7)
  - Gastrointestinal haemorrhage [Unknown]
  - Gastrooesophageal reflux disease [Unknown]
  - Haemorrhoids [Unknown]
  - Diverticulum intestinal [Unknown]
  - Product administration error [Unknown]
  - Gastroenteritis [Recovering/Resolving]
  - Polyp [Recovered/Resolved]

NARRATIVE: CASE EVENT DATE: 20150115
